FAERS Safety Report 10094169 (Version 2)
Quarter: 2014Q2

REPORT INFORMATION
  Report Type: Report from Study
  Country: BE (occurrence: BE)
  Receive Date: 20140422
  Receipt Date: 20140422
  Transmission Date: 20141212
  Serious: Yes (Other)
  Sender: FDA-Public Use
  Company Number: BE-ROCHE-1380646

PATIENT
  Age: 37 Year
  Sex: Female

DRUGS (2)
  1. TRASTUZUMAB [Suspect]
     Indication: BREAST CANCER
     Route: 065
     Dates: start: 20121126
  2. TRASTUZUMAB EMTANSINE [Suspect]
     Indication: BREAST CANCER
     Dosage: ON 28/FEB/2014, THE LAST DOSE PRIOR TO SAE- 3.6MG/KG INFUSION, CYCLE NUMBER 21
     Route: 065
     Dates: start: 20121130

REACTIONS (1)
  - Supraventricular tachycardia [Not Recovered/Not Resolved]
